FAERS Safety Report 4706424-7 (Version None)
Quarter: 2005Q2

REPORT INFORMATION
  Report Type: 
  Country: None (occurrence: None)
  Receive Date: 20050629
  Receipt Date: 20050413
  Transmission Date: 20051028
  Serious: No
  Sender: FDA-Public Use
  Company Number: 05P-163-0297239-00

PATIENT
  Sex: Female
  Weight: 88.4514 kg

DRUGS (6)
  1. HUMIRA [Suspect]
     Indication: RHEUMATOID ARTHRITIS
     Dosage: 40 MG, 1 IN 2 WK, SUBCUTANEOUS
     Route: 058
     Dates: start: 20050408
  2. LEFLUNOMIDE [Concomitant]
  3. BENACAR [Concomitant]
  4. AMLODIPINE BESILATE [Concomitant]
  5. ATORVASTATIN CALCIUM [Concomitant]
  6. SERTRALINE HYDROCHLORIDE [Concomitant]

REACTIONS (1)
  - INJECTION SITE PAIN [None]
